FAERS Safety Report 8580483-6 (Version None)
Quarter: 2012Q3

REPORT INFORMATION
  Report Type: 
  Country: None (occurrence: None)
  Receive Date: 20120808
  Receipt Date: 20120802
  Transmission Date: 20120928
  Serious: Yes (Death)
  Sender: FDA-Public Use
  Company Number: JP-BAYER-2011-053260

PATIENT
  Age: 77 Year
  Sex: Female

DRUGS (2)
  1. NEXAVAR [Suspect]
     Indication: RENAL CELL CARCINOMA
     Dosage: DAILY DOSE 400 MG
     Route: 048
     Dates: start: 20110523
  2. NEXAVAR [Suspect]
     Dosage: DAILY DOSE 600 MG
     Route: 048
     Dates: end: 20110601

REACTIONS (8)
  - ABDOMINAL PAIN [None]
  - PNEUMATOSIS INTESTINALIS [None]
  - MALAISE [None]
  - BLOOD CREATININE INCREASED [None]
  - VOMITING [None]
  - INTESTINAL HAEMORRHAGE [None]
  - THROMBOCYTOPENIA [None]
  - PORTAL VENOUS GAS [None]
